FAERS Safety Report 16984615 (Version 1)
Quarter: 2019Q4

REPORT INFORMATION
  Report Type: Spontaneous
  Country: US (occurrence: US)
  Receive Date: 20191101
  Receipt Date: 20191101
  Transmission Date: 20200122
  Serious: Yes (Life-Threatening, Disabling, Other)
  Sender: FDA-Public Use
  Company Number: US-SA-2019SA300694

PATIENT
  Sex: Female
  Weight: 61.5 kg

DRUGS (28)
  1. ACETYLSALICYLIC ACID [Suspect]
     Active Substance: ASPIRIN
     Dosage: 100 MG, QD
     Route: 048
     Dates: start: 20190926, end: 20190926
  2. ONDANSETRON [Concomitant]
     Active Substance: ONDANSETRON
     Dosage: 4 MG, QD
     Route: 065
     Dates: start: 20191008, end: 20191008
  3. ACETYLSALICYLIC ACID [Suspect]
     Active Substance: ASPIRIN
     Dosage: 100 MG, QD
     Route: 048
     Dates: start: 20190820, end: 20190924
  4. ISOVUE 370 [Concomitant]
     Active Substance: IOPAMIDOL
     Dosage: 100 MG, QD
     Route: 065
     Dates: start: 20190904, end: 20190904
  5. PROPOFOL. [Concomitant]
     Active Substance: PROPOFOL
     Dosage: 200 MG, QD
     Dates: start: 20191008, end: 20191008
  6. PLAVIX [Suspect]
     Active Substance: CLOPIDOGREL BISULFATE
     Dosage: 75 MG, QD
     Route: 048
     Dates: start: 20190731, end: 20190731
  7. AMLODIPINE [Concomitant]
     Active Substance: AMLODIPINE BESYLATE
     Dosage: 5 MG, QD
     Dates: start: 20190513, end: 20191008
  8. NITROGLYCERINE [Concomitant]
     Active Substance: NITROGLYCERIN
     Dosage: 0.5 MG, QD
     Route: 065
     Dates: start: 20191008, end: 20191008
  9. ATORVASTATIN [Concomitant]
     Active Substance: ATORVASTATIN
     Dosage: 5 MG, QD
     Dates: start: 20190513
  10. ESCITALOPRAM [Concomitant]
     Active Substance: ESCITALOPRAM OXALATE
     Dosage: 10 MG, QD
     Dates: start: 20190915
  11. ACETYLSALICYLIC ACID [Suspect]
     Active Substance: ASPIRIN
     Dosage: 100 MG, QD
     Route: 048
     Dates: start: 20190925, end: 20190925
  12. AMLODIPINE [Concomitant]
     Active Substance: AMLODIPINE BESYLATE
     Dosage: 5 UNK
     Route: 065
     Dates: start: 20190513, end: 20191008
  13. METOPROLOL. [Concomitant]
     Active Substance: METOPROLOL
     Dosage: 25 UNK
     Route: 065
  14. POTASSIUM CHLORIDE. [Concomitant]
     Active Substance: POTASSIUM CHLORIDE
     Dosage: 20 MG, QD
     Dates: start: 20191008, end: 20191008
  15. PHENYLEPHRINE [Concomitant]
     Active Substance: PHENYLEPHRINE HYDROCHLORIDE
     Dosage: 400 MG, QD
     Route: 065
     Dates: start: 20191008, end: 20191008
  16. PLAVIX [Suspect]
     Active Substance: CLOPIDOGREL BISULFATE
     Dosage: 75 MG, QD
     Route: 048
     Dates: start: 20190801, end: 20190818
  17. ACETYLSALICYLIC ACID [Suspect]
     Active Substance: ASPIRIN
     Dosage: 100 MG, QD
     Route: 048
     Dates: start: 20190801, end: 20190818
  18. ACETYLSALICYLIC ACID [Suspect]
     Active Substance: ASPIRIN
     Dosage: 100 MG, QD
     Route: 048
     Dates: start: 20190819, end: 20190819
  19. FENTANYL. [Concomitant]
     Active Substance: FENTANYL
     Dosage: 25 MG, QD
     Route: 065
     Dates: start: 20191008, end: 20191008
  20. CEFAZOLIN [Concomitant]
     Active Substance: CEFAZOLIN
     Dosage: 1 G, QD
     Dates: start: 20191008, end: 20191008
  21. ACETYLSALICYLIC ACID [Suspect]
     Active Substance: ASPIRIN
     Dosage: 100 MG, QD
     Route: 048
     Dates: start: 20190731, end: 20190731
  22. METOPROLOL. [Concomitant]
     Active Substance: METOPROLOL
     Dosage: 25 MG, QD
     Route: 065
  23. ATORVASTATIN [Concomitant]
     Active Substance: ATORVASTATIN
     Dosage: 40 MG, QD
     Route: 065
     Dates: start: 20190513
  24. OMNIPAQUE [Concomitant]
     Active Substance: IOHEXOL
     Dosage: 110 MG, QD
     Dates: start: 20191008, end: 20191008
  25. PLAVIX [Suspect]
     Active Substance: CLOPIDOGREL BISULFATE
     Dosage: 75 MG, QD
     Route: 048
     Dates: start: 20190819, end: 20190819
  26. ACETYLSALICYLIC ACID [Suspect]
     Active Substance: ASPIRIN
     Dosage: 100 MG, QD
     Route: 048
     Dates: start: 20190730, end: 20190730
  27. EPHEDRINE. [Concomitant]
     Active Substance: EPHEDRINE
     Dosage: 25 MG, QD
     Dates: start: 20191008, end: 20191008
  28. LIDOCAINE. [Concomitant]
     Active Substance: LIDOCAINE
     Dosage: 70 MG, QD
     Route: 065
     Dates: start: 20191008, end: 20191008

REACTIONS (2)
  - Cerebrovascular accident [Not Recovered/Not Resolved]
  - Cerebral artery stent insertion [Unknown]

NARRATIVE: CASE EVENT DATE: 20190913
